FAERS Safety Report 17084021 (Version 1)
Quarter: 2019Q4

REPORT INFORMATION
  Report Type: Report from Study
  Country: RU (occurrence: RU)
  Receive Date: 20191127
  Receipt Date: 20191127
  Transmission Date: 20200122
  Serious: Yes (Death, Other)
  Sender: FDA-Public Use
  Company Number: PHHY2019RU072994

PATIENT
  Age: 44 Year
  Sex: Female

DRUGS (2)
  1. TRAMETINIB [Suspect]
     Active Substance: TRAMETINIB
     Indication: PRODUCT USED FOR UNKNOWN INDICATION
     Dosage: UNK
     Route: 065
     Dates: start: 20170811, end: 20181008
  2. DABRAFENIB [Suspect]
     Active Substance: DABRAFENIB
     Indication: PRODUCT USED FOR UNKNOWN INDICATION
     Dosage: UNK
     Route: 065
     Dates: start: 20170811, end: 20181008

REACTIONS (9)
  - Metastases to eye [Unknown]
  - Pallor [Unknown]
  - Metastases to skin [Unknown]
  - Metastatic malignant melanoma [Unknown]
  - Metastases to lymph nodes [Unknown]
  - Metastases to lung [Unknown]
  - Death [Fatal]
  - Concomitant disease progression [Unknown]
  - Metastases to bone marrow [Unknown]

NARRATIVE: CASE EVENT DATE: 201906
